FAERS Safety Report 13759051 (Version 3)
Quarter: 2017Q3

REPORT INFORMATION
  Report Type: Report from Study
  Country: CN (occurrence: CN)
  Receive Date: 20170717
  Receipt Date: 20170829
  Transmission Date: 20171127
  Serious: Yes (Death, Hospitalization)
  Sender: FDA-Public Use
  Company Number: CN-ASTRAZENECA-2017SE72841

PATIENT
  Age: 862 Month
  Sex: Male

DRUGS (5)
  1. METRONIDAZOLE. [Concomitant]
     Active Substance: METRONIDAZOLE
     Indication: MALNUTRITION
     Dates: start: 20170525
  2. HYDROTALCITE [Concomitant]
     Active Substance: HYDROTALCITE
     Indication: MALNUTRITION
     Dates: start: 20170525
  3. AMINO ACIDS NOS [Concomitant]
     Active Substance: AMINO ACIDS
     Indication: MALNUTRITION
     Dates: start: 20170525
  4. TAGRISSO [Suspect]
     Active Substance: OSIMERTINIB
     Indication: NON-SMALL CELL LUNG CANCER METASTATIC
     Route: 048
     Dates: start: 20170421, end: 20170710
  5. PANTOPRAZOLE [Concomitant]
     Active Substance: PANTOPRAZOLE
     Indication: MALNUTRITION
     Dates: start: 20170525

REACTIONS (1)
  - Malnutrition [Fatal]

NARRATIVE: CASE EVENT DATE: 20170613
